FAERS Safety Report 4696028-7 (Version None)
Quarter: 2005Q2

REPORT INFORMATION
  Report Type: 
  Country: None (occurrence: None)
  Receive Date: 20050621
  Receipt Date: 20050614
  Transmission Date: 20051028
  Serious: Yes (Other)
  Sender: FDA-Public Use
  Company Number: GB-GLAXOSMITHKLINE-B0384427A

PATIENT
  Age: 45 Year
  Sex: Male
  Weight: 73.6 kg

DRUGS (11)
  1. ABACAVIR [Suspect]
     Indication: HIV INFECTION
     Dosage: 300MG TWICE PER DAY
     Route: 048
     Dates: start: 19990825, end: 20040205
  2. NIASPAN [Concomitant]
     Dosage: 1000MG PER DAY
     Route: 048
  3. CLOMIPRAMINE HCL [Concomitant]
     Dosage: 25MG PER DAY
     Route: 048
  4. ACYCLOVIR [Concomitant]
     Dosage: 400MG TWICE PER DAY
     Route: 048
  5. COTRIM [Concomitant]
     Dosage: 1UNIT PER DAY
     Route: 048
  6. PRAVASTATIN [Concomitant]
     Dosage: 20MG PER DAY
     Route: 048
  7. LAMIVUDINE [Concomitant]
     Dosage: 150MG THREE TIMES PER DAY
     Route: 048
  8. EFAVIRENZ [Concomitant]
     Dosage: 600MG PER DAY
     Route: 048
  9. IBUPROFEN [Concomitant]
     Route: 048
  10. CETIRIZINE HCL [Concomitant]
     Dosage: 10 PER DAY
     Route: 065
  11. MULTI-VITAMINS [Concomitant]
     Dosage: 1UNIT PER DAY
     Route: 048

REACTIONS (5)
  - FEELING HOT AND COLD [None]
  - LYMPHADENOPATHY [None]
  - MALAISE [None]
  - RASH ERYTHEMATOUS [None]
  - RASH MACULAR [None]
